FAERS Safety Report 9002848 (Version 3)
Quarter: 2013Q1

REPORT INFORMATION
  Report Type: Spontaneous
  Country: JP (occurrence: JP)
  Receive Date: 20130108
  Receipt Date: 20130221
  Transmission Date: 20140127
  Serious: Yes (Other)
  Sender: FDA-Public Use
  Company Number: JP-PFIZER INC-2013004111

PATIENT
  Age: 72 Year
  Sex: Female

DRUGS (3)
  1. LIPITOR [Suspect]
     Indication: PROPHYLAXIS
     Dosage: 5 MG, 1X/DAY
     Route: 048
     Dates: start: 200809
  2. PARIET [Suspect]
     Dosage: 10 MG, DAILY
     Route: 048
  3. VASOLAN [Suspect]
     Dosage: 40 MG, 1X/DAY
     Route: 048

REACTIONS (1)
  - Blood potassium decreased [Recovering/Resolving]
